FAERS Safety Report 9382570 (Version 3)
Quarter: 2014Q1

REPORT INFORMATION
  Report Type: Report from Study
  Country: CA (occurrence: CA)
  Receive Date: 20130703
  Receipt Date: 20140204
  Transmission Date: 20141002
  Serious: Yes (Other)
  Sender: FDA-Public Use
  Company Number: CA-ALEXION-A201300260

PATIENT
  Age: 31 Year
  Sex: Female
  Weight: 63.5 kg

DRUGS (10)
  1. SOLIRIS [Suspect]
     Indication: PAROXYSMAL NOCTURNAL HAEMOGLOBINURIA
     Dosage: 600 MG, QW
     Route: 042
     Dates: start: 20091130, end: 20091221
  2. SOLIRIS [Suspect]
     Dosage: 900 MG, Q2W
     Route: 042
     Dates: start: 20091228, end: 20130610
  3. SOLIRIS [Suspect]
     Dosage: 1200 MG, Q12D
     Route: 042
     Dates: start: 20130818, end: 20130924
  4. SOLIRIS [Suspect]
     Dosage: 1200 MG, Q2W
     Route: 042
     Dates: start: 20130624, end: 20130806
  5. SOLIRIS [Suspect]
     Dosage: 900 MG, Q2W
     Route: 042
  6. SOLIRIS [Suspect]
     Dosage: UNK
  7. CYCLOSPORIN [Concomitant]
     Dosage: 300 MG, QD
     Route: 048
  8. FOLIC ACID [Concomitant]
     Dosage: 5 MG, QD
     Route: 048
  9. MULTIVITAMIN [Concomitant]
     Dosage: UNK, QD
     Route: 048
  10. HORMONE ANTAGONISTS AND RELATED AGENTS [Concomitant]
     Dosage: UNK
     Route: 048
     Dates: end: 201211

REACTIONS (7)
  - Haemoglobin decreased [Recovered/Resolved]
  - Haemoglobinuria [Recovered/Resolved]
  - Exposure during pregnancy [Not Recovered/Not Resolved]
  - Incorrect dose administered [Unknown]
  - Fatigue [Not Recovered/Not Resolved]
  - Back pain [Recovered/Resolved]
  - Jaundice [Not Recovered/Not Resolved]
